FAERS Safety Report 6243449-7 (Version None)
Quarter: 2009Q2

REPORT INFORMATION
  Report Type: 
  Country: None (occurrence: None)
  Receive Date: 20090622
  Receipt Date: 20090603
  Transmission Date: 20091009
  Serious: Yes (Other)
  Sender: FDA-Public Use
  Company Number: 000844

PATIENT
  Sex: Female

DRUGS (1)
  1. VIMPAT [Suspect]
     Dosage: (200 MG BID ORAL)
     Route: 048

REACTIONS (12)
  - BLISTER [None]
  - CONVULSION [None]
  - DISTURBANCE IN ATTENTION [None]
  - FATIGUE [None]
  - FOOD ALLERGY [None]
  - LIP SWELLING [None]
  - MENTAL DISORDER [None]
  - MOUTH ULCERATION [None]
  - OEDEMA MOUTH [None]
  - OROPHARYNGEAL BLISTERING [None]
  - RASH [None]
  - STEVENS-JOHNSON SYNDROME [None]
